FAERS Safety Report 24293595 (Version 1)
Quarter: 2024Q3

REPORT INFORMATION
  Report Type: Spontaneous
  Country: US (occurrence: None)
  Receive Date: 20240906
  Receipt Date: 20240906
  Transmission Date: 20241016
  Serious: No
  Sender: DOMPE FARMACEUTICI
  Company Number: US-FARMAPROD-202402-0420

PATIENT
  Age: 77 Year
  Sex: Female

DRUGS (8)
  1. OXERVATE [Suspect]
     Active Substance: CENEGERMIN-BKBJ
     Indication: Neurotrophic keratopathy
     Route: 047
     Dates: start: 20240201, end: 20240328
  2. OXERVATE [Suspect]
     Active Substance: CENEGERMIN-BKBJ
  3. ERYTHROMYCIN [Concomitant]
     Active Substance: ERYTHROMYCIN
     Dates: start: 20231219, end: 20240330
  4. POLYMYXIN B SUL-TRIMETHOPRIM [Concomitant]
  5. BIOTRUE HYDRATION BOOST [Concomitant]
     Active Substance: GLYCERIN
  6. CELEBREX [Concomitant]
     Active Substance: CELECOXIB
  7. PREMARIN [Concomitant]
     Active Substance: ESTROGENS, CONJUGATED
     Dosage: CREAM WITH APPLICATOR
  8. PRESERVATIVE FREE ARTIFICIAL TEAR [Concomitant]

REACTIONS (3)
  - Product administration error [Unknown]
  - Eye pain [Unknown]
  - Drug ineffective [Recovering/Resolving]

NARRATIVE: CASE EVENT DATE: 20240201
